FAERS Safety Report 7056678-X (Version None)
Quarter: 2010Q4

REPORT INFORMATION
  Report Type: 
  Country: None (occurrence: None)
  Receive Date: 20101021
  Receipt Date: 20101006
  Transmission Date: 20110411
  Serious: Yes (Other)
  Sender: FDA-Public Use
  Company Number: BE-AMGEN GMBH-QUU443733

PATIENT

DRUGS (2)
  1. ARANESP [Suspect]
     Indication: PRODUCT USED FOR UNKNOWN INDICATION
     Dosage: UNK UNK, UNK
  2. CISPLATIN [Concomitant]

REACTIONS (2)
  - LEG AMPUTATION [None]
  - THROMBOSIS [None]
